FAERS Safety Report 4955913-9 (Version None)
Quarter: 2006Q1

REPORT INFORMATION
  Report Type: 
  Country: None (occurrence: None)
  Receive Date: 20060328
  Receipt Date: 20050525
  Transmission Date: 20060701
  Serious: Yes (Hospitalization)
  Sender: FDA-Public Use
  Company Number: JP-BOEHRINGER INGELHEIM PHARMACEUTICALS, INC.-2005-BP-08647NB

PATIENT
  Age: 60 Year
  Sex: Male

DRUGS (6)
  1. MICARDIS [Suspect]
     Indication: HYPERTENSION
     Route: 048
     Dates: start: 20050330, end: 20050401
  2. ASPIRIN [Concomitant]
     Route: 048
  3. LASIX [Concomitant]
     Route: 048
  4. TORSEMIDE [Concomitant]
     Route: 048
  5. WARFARIN [Concomitant]
     Route: 048
  6. KREMEZIN [Concomitant]
     Route: 048

REACTIONS (1)
  - DERMATITIS EXFOLIATIVE [None]
